FAERS Safety Report 17787123 (Version 1)
Quarter: 2020Q2

REPORT INFORMATION
  Report Type: Spontaneous
  Country: NL (occurrence: NL)
  Receive Date: 20200514
  Receipt Date: 20200514
  Transmission Date: 20200714
  Serious: Yes (Death, Hospitalization)
  Sender: FDA-Public Use
  Company Number: NL-TEVA-2020-NL-1233617

PATIENT
  Age: 9 Year
  Sex: Female

DRUGS (9)
  1. METHOTREXATE. [Suspect]
     Active Substance: METHOTREXATE
     Indication: JUVENILE IDIOPATHIC ARTHRITIS
     Dosage: THERAPY START DATE :ASKU?THERAPY END  DATE :ASKU
     Route: 065
  2. PREDNISONE. [Suspect]
     Active Substance: PREDNISONE
     Dosage: THERAPY START DATE :ASKU,THERAPY END  DATE :ASKU
     Route: 065
  3. METHYLPREDNISOLONE. [Suspect]
     Active Substance: METHYLPREDNISOLONE
     Indication: JUVENILE IDIOPATHIC ARTHRITIS
     Dosage: PULSES.THERAPY START DATE :ASKU,THERAPY END  DATE :ASKU
  4. ISONIAZIDE [Concomitant]
     Active Substance: ISONIAZID
  5. INFLIXIMAB [Suspect]
     Active Substance: INFLIXIMAB
     Dosage: 20 MG/KG, QMO,INFLIXIMAB
  6. PYRAZINAMIDE. [Concomitant]
     Active Substance: PYRAZINAMIDE
  7. RIFAMPICIN [Concomitant]
     Active Substance: RIFAMPIN
  8. ETANERCEPT [Suspect]
     Active Substance: ETANERCEPT
     Dosage: 1 MG/KG0.8 MG/KG TWICE A WEEK,THERAPY START DATE :ASKU,THERAPY END  DATE :ASKU
  9. CICLOSPORIN [Suspect]
     Active Substance: CYCLOSPORINE
     Indication: JUVENILE IDIOPATHIC ARTHRITIS
     Dosage: THERAPY START DATE :ASKU,THERAPY END  DATE :ASKU

REACTIONS (16)
  - Device related infection [Fatal]
  - Lymphopenia [Fatal]
  - Escherichia infection [Fatal]
  - Cardiopulmonary failure [Fatal]
  - Central venous pressure increased [Fatal]
  - Immune system disorder [Fatal]
  - Tuberculosis [Fatal]
  - Cardiac arrest [Fatal]
  - Oxygen saturation decreased [Fatal]
  - Bacterial test positive [Fatal]
  - Respiratory failure [Fatal]
  - Death [Fatal]
  - Cyst [Fatal]
  - Opportunistic infection [Fatal]
  - Pneumonia lipoid [Fatal]
  - Pneumonia [Fatal]
